FAERS Safety Report 19766868 (Version 1)
Quarter: 2021Q3

REPORT INFORMATION
  Report Type: Report from Study
  Country: US (occurrence: US)
  Receive Date: 20210831
  Receipt Date: 20210831
  Transmission Date: 20211014
  Serious: Yes (Other)
  Sender: FDA-Public Use
  Company Number: US-EMD SERONO-9261676

PATIENT
  Sex: Male

DRUGS (1)
  1. SEROSTIM [Suspect]
     Active Substance: SOMATROPIN
     Indication: PRODUCT USED FOR UNKNOWN INDICATION
     Route: 058

REACTIONS (5)
  - Near death experience [Unknown]
  - Food refusal [Unknown]
  - Weight decreased [Recovered/Resolved]
  - Treatment noncompliance [Unknown]
  - Stress [Unknown]

NARRATIVE: CASE EVENT DATE: 2017
